FAERS Safety Report 7832432-3 (Version None)
Quarter: 2011Q4

REPORT INFORMATION
  Report Type: 
  Country: None (occurrence: None)
  Receive Date: 20111022
  Receipt Date: 20111007
  Transmission Date: 20120403
  Serious: Yes (Other)
  Sender: FDA-Public Use
  Company Number: US-BAYER-2010-006404

PATIENT
  Age: 27 Year
  Sex: Female

DRUGS (1)
  1. YAZ [Suspect]
     Indication: CONTRACEPTION
     Dosage: UNK
     Route: 048
     Dates: start: 20060601, end: 20090101

REACTIONS (10)
  - EYE MOVEMENT DISORDER [None]
  - MIGRAINE [None]
  - DYSPNOEA [None]
  - PAIN [None]
  - CHEST PAIN [None]
  - MUSCLE TWITCHING [None]
  - INJURY [None]
  - HYPOAESTHESIA [None]
  - DIZZINESS [None]
  - DEEP VEIN THROMBOSIS [None]
